FAERS Safety Report 17987991 (Version 1)
Quarter: 2020Q3

REPORT INFORMATION
  Report Type: Report from Study
  Country: CN (occurrence: CN)
  Receive Date: 20200707
  Receipt Date: 20200707
  Transmission Date: 20201103
  Serious: Yes (Other)
  Sender: FDA-Public Use
  Company Number: CN-SUN PHARMACEUTICAL INDUSTRIES LTD-2020R1-252202

PATIENT
  Age: 57 Year
  Sex: Female

DRUGS (2)
  1. PEMBROLIZUMAB. [Suspect]
     Active Substance: PEMBROLIZUMAB
     Indication: MALIGNANT ANORECTAL NEOPLASM
     Dosage: UNK
     Route: 065
  2. TEMOZOLOMIDE. [Suspect]
     Active Substance: TEMOZOLOMIDE
     Indication: MALIGNANT ANORECTAL NEOPLASM
     Dosage: UNK
     Route: 065

REACTIONS (8)
  - Nausea [Unknown]
  - Pruritus [Unknown]
  - Colitis [Unknown]
  - Metastases to lung [Unknown]
  - Vomiting [Unknown]
  - Metastases to lymph nodes [Unknown]
  - Fatigue [Unknown]
  - Rash [Unknown]
